FAERS Safety Report 8374115-X (Version None)
Quarter: 2012Q2

REPORT INFORMATION
  Report Type: 
  Country: None (occurrence: None)
  Receive Date: 20120521
  Receipt Date: 20120515
  Transmission Date: 20120825
  Serious: Yes (Hospitalization)
  Sender: FDA-Public Use
  Company Number: US-GLAXOSMITHKLINE-A0913489A

PATIENT
  Age: 56 Year
  Sex: Male
  Weight: 113.6 kg

DRUGS (8)
  1. LIPITOR [Concomitant]
  2. AVANDAMET [Suspect]
     Indication: DIABETES MELLITUS
     Route: 048
     Dates: start: 20030206, end: 20100420
  3. LEXAPRO [Concomitant]
  4. FOLTX [Concomitant]
  5. AVANDIA [Suspect]
     Indication: DIABETES MELLITUS
     Dosage: 2MG TWICE PER DAY
     Route: 048
     Dates: start: 20060421, end: 20091219
  6. ALTACE [Concomitant]
  7. GLIPIZIDE [Concomitant]
  8. ZETIA [Concomitant]

REACTIONS (3)
  - ACUTE MYOCARDIAL INFARCTION [None]
  - CARDIAC DISORDER [None]
  - CARDIOVASCULAR DISORDER [None]
